FAERS Safety Report 8800291 (Version 3)
Quarter: 2012Q4

REPORT INFORMATION
  Report Type: 
  Country: JP (occurrence: JP)
  Receive Date: 20120921
  Receipt Date: 20121031
  Transmission Date: 20130627
  Serious: Yes (Death, Hospitalization)
  Sender: FDA-Public Use
  Company Number: JP-AMGEN-JPNSP2012059280

PATIENT
  Age: 72 Year
  Sex: Male
  Weight: 63 kg

DRUGS (26)
  1. RANMARK [Suspect]
     Indication: METASTASES TO BONE
     Dosage: 120 mg, q4wk
     Route: 058
     Dates: start: 20120619, end: 20120717
  2. TS-1 [Concomitant]
     Indication: GASTRIC CANCER
     Dosage: 60 mg, bid
     Route: 048
     Dates: start: 20120531, end: 20120621
  3. TS-1 [Concomitant]
     Dosage: 60 mg, bid
     Route: 048
     Dates: start: 20120705, end: 20120726
  4. TS-1 [Concomitant]
     Dosage: 60 mg, bid
     Route: 048
     Dates: start: 20120816, end: 20120905
  5. CISPLATIN [Concomitant]
     Indication: GASTRIC CANCER
     Dosage: 100 mg, qd
     Route: 042
     Dates: start: 20120607, end: 20120607
  6. CISPLATIN [Concomitant]
     Dosage: 80 mg, qd
     Route: 042
     Dates: start: 20120712, end: 20120712
  7. CISPLATIN [Concomitant]
     Dosage: 80 mg, qd
     Route: 042
     Dates: start: 20120823, end: 20120823
  8. GASTER [Concomitant]
     Indication: REMNANT GASTRITIS
     Dosage: 20 mg, bid
     Route: 048
     Dates: end: 20120911
  9. PRIMPERAN [Concomitant]
     Indication: NAUSEA
     Dosage: 5 mg, tid
     Route: 048
     Dates: start: 20120824, end: 20120904
  10. LOPEMIN [Concomitant]
     Indication: DIARRHOEA
     Dosage: 1 mg, bid
     Route: 048
     Dates: start: 20120828
  11. MAXIPIME [Concomitant]
     Indication: PYREXIA
     Dosage: 1.5 g, tid
     Route: 065
     Dates: start: 20120911, end: 20120918
  12. NONTHRON [Concomitant]
     Dosage: 3000 IU, qd
     Route: 065
     Dates: start: 20120912, end: 20120912
  13. NONTHRON [Concomitant]
     Dosage: 3000 IU, qd
     Route: 065
     Dates: start: 20120916, end: 20120916
  14. NONTHRON [Concomitant]
     Dosage: 3000 IU, qd
     Route: 065
     Dates: start: 20120921, end: 20120921
  15. NONTHRON [Concomitant]
     Dosage: 3000 IU, qd
     Route: 065
     Dates: start: 20120925, end: 20120925
  16. FOLIAMIN [Concomitant]
     Indication: ANAEMIA FOLATE DEFICIENCY
     Dosage: 1 DF, qd
     Route: 030
     Dates: start: 20120918, end: 20120926
  17. LASIX [Concomitant]
     Indication: PLEURAL EFFUSION
     Dosage: 2 DF, UNK
     Route: 042
     Dates: start: 20120908, end: 20120922
  18. LASIX [Concomitant]
     Dosage: 6 DF, UNK
     Route: 042
     Dates: start: 20120923, end: 20120928
  19. STRONGER MINOPHAGEN C [Concomitant]
     Indication: HEPATIC FUNCTION ABNORMAL
     Dosage: 80 ml, UNK
     Route: 042
     Dates: start: 20120921, end: 20120928
  20. CRAVIT [Concomitant]
     Indication: PNEUMONIA ASPIRATION
     Dosage: 500 mg, qd
     Route: 042
     Dates: start: 20120923, end: 20120925
  21. VANCOMYCIN HYDROCHLORIDE [Concomitant]
     Indication: SEPSIS
     Dosage: 1 g, qd
     Route: 042
     Dates: start: 20120926, end: 20120927
  22. FUNGUARD [Concomitant]
     Indication: SEPSIS
     Dosage: 100 mg, qd
     Route: 042
     Dates: start: 20120926, end: 20120928
  23. DALACIN [Concomitant]
     Indication: SEPSIS
     Dosage: 600 mg, bid
     Route: 042
     Dates: start: 20120927, end: 20120928
  24. DOPAMINE HYDROCHLORIDE [Concomitant]
     Indication: SEPTIC SHOCK
     Dosage: For a dose: 10 gamma
     Route: 042
     Dates: start: 20120927, end: 20120928
  25. NORADRENALIN [Concomitant]
     Indication: SEPTIC SHOCK
     Dosage: For a dose: 0.5 gamma
     Route: 042
     Dates: start: 20120927, end: 20120928
  26. PITRESSIN [Concomitant]
     Indication: SEPTIC SHOCK
     Dosage: 40 IU, UNK
     Route: 065
     Dates: start: 20120928, end: 20120928

REACTIONS (3)
  - Disseminated intravascular coagulation [Fatal]
  - Hypocalcaemia [Not Recovered/Not Resolved]
  - Hypophosphataemia [Recovered/Resolved]
